FAERS Safety Report 4910808-1 (Version None)
Quarter: 2006Q1

REPORT INFORMATION
  Report Type: 
  Country: None (occurrence: None)
  Receive Date: 20060214
  Receipt Date: 20051117
  Transmission Date: 20060701
  Serious: Yes (Other)
  Sender: FDA-Public Use
  Company Number: US-GLAXOSMITHKLINE-A0582752A

PATIENT
  Age: 68 Year
  Sex: Male
  Weight: 113.2 kg

DRUGS (1)
  1. REQUIP [Suspect]
     Indication: RESTLESS LEGS SYNDROME
     Dosage: 1MG PER DAY
     Route: 048
     Dates: start: 20050824, end: 20051122

REACTIONS (4)
  - BLOOD CREATININE INCREASED [None]
  - DRUG INEFFECTIVE [None]
  - GOUT [None]
  - INSOMNIA [None]
